FAERS Safety Report 6411103-4 (Version None)
Quarter: 2009Q4

REPORT INFORMATION
  Report Type: 
  Country: None (occurrence: None)
  Receive Date: 20091016
  Receipt Date: 20090924
  Transmission Date: 20100525
  Serious: Yes (Other)
  Sender: FDA-Public Use
  Company Number: WAES 0910USA00643

PATIENT
  Age: 72 Year
  Sex: Male

DRUGS (1)
  1. MEVACOR [Suspect]
     Indication: ISCHAEMIC STROKE
     Dosage: 6 MG/KG/DAILY/PO
     Route: 048

REACTIONS (3)
  - BRADYCARDIA [None]
  - DYSARTHRIA [None]
  - URINARY TRACT INFECTION [None]
